FAERS Safety Report 8177355-8 (Version None)
Quarter: 2012Q1

REPORT INFORMATION
  Report Type: 
  Country: None (occurrence: None)
  Receive Date: 20120301
  Receipt Date: 20120221
  Transmission Date: 20120608
  Serious: Yes (Hospitalization)
  Sender: FDA-Public Use
  Company Number: US-BAYER-2012-018498

PATIENT
  Age: 27 Year
  Sex: Female
  Weight: 79 kg

DRUGS (3)
  1. SYNTHROID [Concomitant]
     Indication: HYPOTHYROIDISM
     Dosage: UNK
     Dates: start: 20040101
  2. YASMIN [Suspect]
     Indication: CONTRACEPTION
     Dosage: UNK
     Dates: start: 20030501, end: 20060101
  3. ALBUTEROL [Concomitant]
     Dosage: UNK
     Dates: start: 19950101

REACTIONS (8)
  - PAIN [None]
  - PROCEDURAL PAIN [None]
  - DEEP VEIN THROMBOSIS [None]
  - ANXIETY [None]
  - PULMONARY EMBOLISM [None]
  - GALLBLADDER DISORDER [None]
  - NAUSEA [None]
  - VOMITING [None]
